FAERS Safety Report 25714786 (Version 1)
Quarter: 2025Q3

REPORT INFORMATION
  Report Type: Spontaneous
  Country: GB (occurrence: GB)
  Receive Date: 20250822
  Receipt Date: 20250822
  Transmission Date: 20251020
  Serious: Yes (Other)
  Sender: RANBAXY
  Company Number: GB-MHRA-MED-202508071744596250-BDQFR

PATIENT
  Age: 70 Year
  Sex: Female
  Weight: 80 kg

DRUGS (1)
  1. ROSUVASTATIN [Suspect]
     Active Substance: ROSUVASTATIN
     Indication: Blood cholesterol increased
     Route: 065
     Dates: start: 20241018, end: 20250805

REACTIONS (3)
  - Arthralgia [Unknown]
  - Burning feet syndrome [Unknown]
  - Breast pain [Unknown]

NARRATIVE: CASE EVENT DATE: 20250726
